FAERS Safety Report 5087985-8 (Version None)
Quarter: 2006Q3

REPORT INFORMATION
  Report Type: 
  Country: None (occurrence: None)
  Receive Date: 20060727
  Receipt Date: 20060603
  Transmission Date: 20061208
  Serious: Yes (Other)
  Sender: FDA-Public Use
  Company Number: 2006058266

PATIENT

DRUGS (1)
  1. LYRICA [Suspect]
     Indication: NEUROPATHY
     Dosage: 300 MG (150 MG,2 IN 1 D)

REACTIONS (2)
  - CREATININE RENAL CLEARANCE [None]
  - OEDEMA PERIPHERAL [None]
